FAERS Safety Report 21220558 (Version 1)
Quarter: 2022Q3

REPORT INFORMATION
  Report Type: Spontaneous
  Country: US (occurrence: None)
  Receive Date: 20220817
  Receipt Date: 20220817
  Transmission Date: 20221026
  Serious: Yes (Other)
  Sender: FDA-Public Use
  Company Number: US-ROCHE-3159686

PATIENT
  Sex: Male
  Weight: 68.100 kg

DRUGS (1)
  1. GAZYVA [Suspect]
     Active Substance: OBINUTUZUMAB
     Indication: Chronic lymphocytic leukaemia
     Dosage: YES
     Route: 042
     Dates: start: 202206

REACTIONS (1)
  - Cataract [Not Recovered/Not Resolved]
